FAERS Safety Report 8059984-5 (Version None)
Quarter: 2012Q1

REPORT INFORMATION
  Report Type: 
  Country: None (occurrence: None)
  Receive Date: 20120120
  Receipt Date: 20120113
  Transmission Date: 20120608
  Serious: Yes (Hospitalization)
  Sender: FDA-Public Use
  Company Number: FR-JNJFOC-20120104690

PATIENT
  Age: 67 Year
  Sex: Male

DRUGS (10)
  1. PREVISCAN (FLUINDIONE) [Concomitant]
     Route: 065
  2. POLYETHYLENE GLYCOL [Concomitant]
     Route: 065
  3. SPORANOX [Suspect]
     Route: 065
     Dates: start: 20111004, end: 20111012
  4. FLUTICASONE PROPIONATE/SALMETEROL [Concomitant]
     Route: 065
  5. SPORANOX [Suspect]
     Indication: BRONCHOPULMONARY ASPERGILLOSIS
     Route: 065
  6. OLMESARTAN MEDOXOMIL [Concomitant]
     Route: 065
  7. BRONCHODUAL [Concomitant]
     Route: 065
  8. SPORANOX [Suspect]
     Dosage: FOR 15 DAYS
     Route: 065
     Dates: start: 20110920
  9. GAVISCON (ANTACID) [Concomitant]
     Route: 065
  10. TERBUTALINE [Concomitant]
     Route: 065

REACTIONS (3)
  - CHOLESTASIS [None]
  - OEDEMA PERIPHERAL [None]
  - CYTOLYTIC HEPATITIS [None]
